FAERS Safety Report 11233618 (Version 2)
Quarter: 2015Q3

REPORT INFORMATION
  Report Type: Spontaneous
  Country: US (occurrence: US)
  Receive Date: 20150702
  Receipt Date: 20150729
  Transmission Date: 20151125
  Serious: No
  Sender: FDA-Public Use
  Company Number: US-B.I. PHARMACEUTICALS,INC./RIDGEFIELD-2015-BI-33181BP

PATIENT
  Age: 64 Year
  Sex: Female
  Weight: 64 kg

DRUGS (7)
  1. PROBIOTIC [Concomitant]
     Active Substance: PROBIOTICS NOS
     Indication: GASTRIC DISORDER
     Route: 048
  2. PEPCID [Concomitant]
     Active Substance: FAMOTIDINE
     Indication: GASTROOESOPHAGEAL REFLUX DISEASE
     Dosage: 40 MG
     Route: 048
  3. PREMARIN LOW DOSE [Concomitant]
     Indication: FRACTURE
     Dosage: 0.45 MG
     Route: 048
     Dates: start: 2005
  4. SPIRIVA [Suspect]
     Active Substance: TIOTROPIUM BROMIDE MONOHYDRATE
     Indication: CHRONIC OBSTRUCTIVE PULMONARY DISEASE
     Dosage: 18 MCG
     Route: 055
     Dates: start: 2010
  5. OSCAL [Concomitant]
     Active Substance: CALCIUM CARBONATE
     Indication: FRACTURE
     Dosage: STRENGTH: 600 MG / 500 IU; DAILY DOSE: 1200 MG / 1000 IU
     Route: 048
     Dates: start: 2005
  6. ADVAIR HFA [Concomitant]
     Active Substance: FLUTICASONE PROPIONATE\SALMETEROL XINAFOATE
     Indication: CHRONIC OBSTRUCTIVE PULMONARY DISEASE
     Dosage: FORMULATION:INHALATION SPRAY; STRENGTH: 250/50; DAILY DOSE: 500/100
     Route: 055
     Dates: start: 2007
  7. SERTRALINE [Concomitant]
     Active Substance: SERTRALINE HYDROCHLORIDE
     Indication: ANXIETY
     Dosage: 100 MG
     Route: 048
     Dates: start: 2012

REACTIONS (2)
  - Product quality issue [Unknown]
  - Dyspnoea [Not Recovered/Not Resolved]

NARRATIVE: CASE EVENT DATE: 20150518
